APPROVED DRUG PRODUCT: CURRETAB
Active Ingredient: MEDROXYPROGESTERONE ACETATE
Strength: 10MG
Dosage Form/Route: TABLET;ORAL
Application: A085686 | Product #001
Applicant: SOLVAY PHARMACEUTICALS
Approved: Approved Prior to Jan 1, 1982 | RLD: No | RS: No | Type: DISCN